FAERS Safety Report 10515274 (Version 2)
Quarter: 2014Q4

REPORT INFORMATION
  Report Type: Spontaneous
  Country: JP (occurrence: JP)
  Receive Date: 20141014
  Receipt Date: 20141014
  Transmission Date: 20150528
  Serious: Yes (Other)
  Sender: FDA-Public Use
  Company Number: JP-ORION CORPORATION ORION PHARMA-ENT 2008-0181

PATIENT
  Age: 76 Year
  Sex: Female
  Weight: 40 kg

DRUGS (9)
  1. FAMOTIDINE. [Concomitant]
     Active Substance: FAMOTIDINE
     Route: 065
     Dates: start: 20081008
  2. TETRAMIDE [Concomitant]
     Active Substance: MIANSERIN
     Route: 065
     Dates: start: 20000329
  3. ARTANE [Concomitant]
     Active Substance: TRIHEXYPHENIDYL HYDROCHLORIDE
     Route: 065
  4. MAGNESIUM OXIDE. [Concomitant]
     Active Substance: MAGNESIUM OXIDE
     Route: 065
     Dates: start: 20001208
  5. MENESIT [Concomitant]
     Active Substance: CARBIDOPA\LEVODOPA
     Dosage: 500 MG
     Route: 065
  6. MENESIT [Concomitant]
     Active Substance: CARBIDOPA\LEVODOPA
     Dosage: 300 MG
     Route: 065
     Dates: start: 20081017
  7. CABASER [Concomitant]
     Active Substance: CABERGOLINE
     Route: 065
     Dates: start: 20001208
  8. COMTAN [Suspect]
     Active Substance: ENTACAPONE
     Indication: DRUG EFFECT DECREASED
     Route: 048
     Dates: start: 20081016, end: 20081023
  9. SYMMETREL [Concomitant]
     Active Substance: AMANTADINE HYDROCHLORIDE
     Route: 065
     Dates: start: 20040109

REACTIONS (7)
  - Flushing [Recovered/Resolved]
  - Liver disorder [Recovered/Resolved]
  - Hypernatraemia [Recovered/Resolved]
  - Aspartate aminotransferase increased [None]
  - Alanine aminotransferase increased [None]
  - Gamma-glutamyltransferase increased [None]
  - Blood lactate dehydrogenase increased [None]

NARRATIVE: CASE EVENT DATE: 20081022
